FAERS Safety Report 8844959 (Version 1)
Quarter: 2012Q4

REPORT INFORMATION
  Report Type: Spontaneous
  Country: US (occurrence: None)
  Receive Date: 20121002
  Receipt Date: 20121002
  Transmission Date: 20130627
  Serious: Yes (Other)
  Sender: FDA-Public Use
  Company Number: 1106710

PATIENT
  Sex: Male

DRUGS (3)
  1. NITROGLYCERIN [Suspect]
     Indication: ANGINA PECTORIS
     Route: 042
     Dates: start: 20111104
  2. NITROGLYCERIN [Suspect]
     Indication: CHEST PAIN
     Route: 042
     Dates: start: 20111104
  3. NITROGLYCERIN [Suspect]
     Indication: MYOCARDIAL INFARCTION
     Route: 042
     Dates: start: 20111104

REACTIONS (1)
  - Blood pressure decreased [None]
